FAERS Safety Report 18119638 (Version 2)
Quarter: 2022Q1

REPORT INFORMATION
  Report Type: Report from Study
  Country: FR (occurrence: FR)
  Receive Date: 20200806
  Receipt Date: 20220121
  Transmission Date: 20220423
  Serious: Yes (Hospitalization)
  Sender: FDA-Public Use
  Company Number: FR-SHIRE-FR201803355

PATIENT
  Sex: Male
  Weight: 58 kg

DRUGS (24)
  1. TEDUGLUTIDE [Suspect]
     Active Substance: TEDUGLUTIDE
     Indication: Short-bowel syndrome
     Dosage: 0.05 MG/KG, 1X/DAY:QD
     Route: 065
     Dates: start: 20160115, end: 20170901
  2. TEDUGLUTIDE [Suspect]
     Active Substance: TEDUGLUTIDE
     Indication: Short-bowel syndrome
     Dosage: 0.05 MG/KG, 1X/DAY:QD
     Route: 065
     Dates: start: 20160115, end: 20170901
  3. TEDUGLUTIDE [Suspect]
     Active Substance: TEDUGLUTIDE
     Indication: Short-bowel syndrome
     Dosage: 0.05 MG/KG, 1X/DAY:QD
     Route: 065
     Dates: start: 20160115, end: 20170901
  4. TEDUGLUTIDE [Suspect]
     Active Substance: TEDUGLUTIDE
     Indication: Short-bowel syndrome
     Dosage: 0.05 MG/KG, 1X/DAY:QD
     Route: 065
     Dates: start: 20160115, end: 20170901
  5. TEDUGLUTIDE [Suspect]
     Active Substance: TEDUGLUTIDE
     Dosage: 2.85 MILLIGRAM, QD
     Route: 065
     Dates: start: 20160115, end: 20170706
  6. TEDUGLUTIDE [Suspect]
     Active Substance: TEDUGLUTIDE
     Dosage: 2.85 MILLIGRAM, QD
     Route: 065
     Dates: start: 20160115, end: 20170706
  7. TEDUGLUTIDE [Suspect]
     Active Substance: TEDUGLUTIDE
     Dosage: 2.85 MILLIGRAM, QD
     Route: 065
     Dates: start: 20160115, end: 20170706
  8. TEDUGLUTIDE [Suspect]
     Active Substance: TEDUGLUTIDE
     Dosage: 2.85 MILLIGRAM, QD
     Route: 065
     Dates: start: 20160115, end: 20170706
  9. TEDUGLUTIDE [Suspect]
     Active Substance: TEDUGLUTIDE
     Dosage: 2.85 MILLIGRAM, Q72H
     Route: 065
     Dates: start: 20170706, end: 20170901
  10. TEDUGLUTIDE [Suspect]
     Active Substance: TEDUGLUTIDE
     Dosage: 2.85 MILLIGRAM, Q72H
     Route: 065
     Dates: start: 20170706, end: 20170901
  11. TEDUGLUTIDE [Suspect]
     Active Substance: TEDUGLUTIDE
     Dosage: 2.85 MILLIGRAM, Q72H
     Route: 065
     Dates: start: 20170706, end: 20170901
  12. TEDUGLUTIDE [Suspect]
     Active Substance: TEDUGLUTIDE
     Dosage: 2.85 MILLIGRAM, Q72H
     Route: 065
     Dates: start: 20170706, end: 20170901
  13. TEDUGLUTIDE [Suspect]
     Active Substance: TEDUGLUTIDE
     Dosage: 2.80 MILLIGRAM, QD
     Route: 065
     Dates: start: 20180108
  14. TEDUGLUTIDE [Suspect]
     Active Substance: TEDUGLUTIDE
     Dosage: 2.80 MILLIGRAM, QD
     Route: 065
     Dates: start: 20180108
  15. TEDUGLUTIDE [Suspect]
     Active Substance: TEDUGLUTIDE
     Dosage: 2.80 MILLIGRAM, QD
     Route: 065
     Dates: start: 20180108
  16. TEDUGLUTIDE [Suspect]
     Active Substance: TEDUGLUTIDE
     Dosage: 2.80 MILLIGRAM, QD
     Route: 065
     Dates: start: 20180108
  17. LOPERAMIDE [Concomitant]
     Active Substance: LOPERAMIDE
     Indication: Diarrhoea
  18. QUESTRAN [Concomitant]
     Active Substance: CHOLESTYRAMINE
     Indication: Diarrhoea
  19. VITAMIN B12 [Concomitant]
     Active Substance: CYANOCOBALAMIN
     Indication: Supplementation therapy
  20. VITAMIN D3 [Concomitant]
     Active Substance: CHOLECALCIFEROL
     Indication: Supplementation therapy
  21. VANCOMYCIN [Concomitant]
     Active Substance: VANCOMYCIN
     Indication: Dermatitis infected
     Dosage: UNK
     Route: 042
     Dates: start: 201806, end: 201806
  22. VANCOMYCIN [Concomitant]
     Active Substance: VANCOMYCIN
     Indication: Device related infection
     Dosage: 30 MILLIGRAM/KILOGRAM
     Route: 042
     Dates: start: 20170803, end: 20170813
  23. PIPERACILLIN SODIUM\TAZOBACTAM SODIUM [Concomitant]
     Active Substance: PIPERACILLIN SODIUM\TAZOBACTAM SODIUM
     Indication: Dermatitis infected
     Dosage: UNK
     Route: 042
     Dates: start: 201806, end: 201806
  24. LINEZOLID [Concomitant]
     Active Substance: LINEZOLID
     Indication: Dermatitis infected
     Dosage: UNK
     Route: 048
     Dates: start: 201806, end: 201806

REACTIONS (1)
  - General physical health deterioration [Recovered/Resolved]

NARRATIVE: CASE EVENT DATE: 20170621
